FAERS Safety Report 15224903 (Version 1)
Quarter: 2018Q3

REPORT INFORMATION
  Report Type: Spontaneous
  Country: US (occurrence: US)
  Receive Date: 20180731
  Receipt Date: 20180731
  Transmission Date: 20181010
  Serious: Yes (Hospitalization)
  Sender: FDA-Public Use
  Company Number: US-ALKERMES INC.-ALK-2018-003992

PATIENT
  Age: 5 Decade
  Sex: Male
  Weight: 54.42 kg

DRUGS (1)
  1. VIVITROL [Suspect]
     Active Substance: NALTREXONE
     Indication: ALCOHOLISM
     Dosage: 380 MG, QMO
     Route: 030
     Dates: start: 201712

REACTIONS (5)
  - Injection site reaction [Unknown]
  - Injection site nerve damage [Unknown]
  - Weight bearing difficulty [Unknown]
  - General physical health deterioration [Unknown]
  - Peroneal nerve palsy [Unknown]

NARRATIVE: CASE EVENT DATE: 201807
